FAERS Safety Report 25877754 (Version 1)
Quarter: 2025Q4

REPORT INFORMATION
  Report Type: Spontaneous
  Country: US (occurrence: None)
  Receive Date: 20251002
  Receipt Date: 20251002
  Transmission Date: 20260118
  Serious: Yes (unspecified)
  Sender: FDA-CTU
  Company Number: None

PATIENT
  Age: 23 Year
  Sex: Male
  Weight: 61.23 kg

DRUGS (1)
  1. RENFLEXIS [Suspect]
     Active Substance: INFLIXIMAB-ABDA
     Indication: Colitis ulcerative
     Dosage: 4000 MG EVERY 8 WEEKS INTRAVENOUS
     Route: 042
     Dates: start: 20250530

REACTIONS (3)
  - Diarrhoea [None]
  - Rectal haemorrhage [None]
  - Infusion related reaction [None]

NARRATIVE: CASE EVENT DATE: 20250825
